FAERS Safety Report 11284869 (Version 1)
Quarter: 2015Q3

REPORT INFORMATION
  Report Type: Spontaneous
  Country: US (occurrence: US)
  Receive Date: 20150720
  Receipt Date: 20150720
  Transmission Date: 20151125
  Serious: Yes (Death)
  Sender: FDA-Public Use
  Company Number: US-JNJFOC-20150711709

PATIENT
  Age: 6 Decade
  Sex: Male

DRUGS (2)
  1. ANGIOMAX [Suspect]
     Active Substance: BIVALIRUDIN
     Indication: PERCUTANEOUS CORONARY INTERVENTION
     Route: 065
  2. REOPRO [Suspect]
     Active Substance: ABCIXIMAB
     Indication: PERCUTANEOUS CORONARY INTERVENTION
     Dosage: 1 DOSE (5 ML)
     Route: 042
     Dates: start: 20150615, end: 20150615

REACTIONS (2)
  - Cardiogenic shock [Fatal]
  - Pulmonary haemorrhage [Fatal]
